FAERS Safety Report 5897665-4 (Version None)
Quarter: 2008Q3

REPORT INFORMATION
  Report Type: 
  Country: None (occurrence: None)
  Receive Date: 20080919
  Receipt Date: 20080827
  Transmission Date: 20090109
  Serious: No
  Sender: FDA-Public Use
  Company Number: US-WYE-H05753108

PATIENT
  Age: 54 Year
  Sex: Female

DRUGS (3)
  1. PRISTIQ [Suspect]
     Indication: BIPOLAR DISORDER
     Dosage: 50 MG 1X PER 1 DAY, ORAL
     Route: 048
     Dates: start: 20080825
  2. WELLBUTRIN [Concomitant]
  3. CLONAZEPAM [Concomitant]

REACTIONS (1)
  - SOMNOLENCE [None]
